FAERS Safety Report 7601707-5 (Version None)
Quarter: 2011Q2

REPORT INFORMATION
  Report Type: 
  Country: None (occurrence: None)
  Receive Date: 20110630
  Receipt Date: 20110615
  Transmission Date: 20111010
  Serious: Yes (Death, Hospitalization)
  Sender: FDA-Public Use
  Company Number: 2011P1007180

PATIENT
  Age: 81 Year
  Sex: Female
  Weight: 113.3993 kg

DRUGS (2)
  1. LIDOCAINE [Concomitant]
  2. SANTYL [Suspect]
     Indication: INJECTION
     Dosage: 2 OR 3 TIMES, PER WEEK, TOP
     Route: 061
     Dates: start: 20110601

REACTIONS (3)
  - CARDIAC DISORDER [None]
  - DRUG INEFFECTIVE [None]
  - MYOCARDIAL INFARCTION [None]
